FAERS Safety Report 21905560 (Version 1)
Quarter: 2023Q1

REPORT INFORMATION
  Report Type: Spontaneous
  Country: US (occurrence: None)
  Receive Date: 20230124
  Receipt Date: 20230124
  Transmission Date: 20230418
  Serious: Yes (Death)
  Sender: FDA-Public Use
  Company Number: None

PATIENT
  Age: 39 Year
  Sex: Female

DRUGS (4)
  1. FLUCONAZOLE [Suspect]
     Active Substance: FLUCONAZOLE
     Indication: HIV infection
     Dosage: FREQUENCY : DAILY;?
     Route: 048
     Dates: start: 20221108, end: 20230114
  2. BIKTARVY [Suspect]
     Active Substance: BICTEGRAVIR SODIUM\EMTRICITABINE\TENOFOVIR ALAFENAMIDE FUMARATE
     Indication: HIV infection
     Dosage: FREQUENCY : DAILY;?
     Route: 048
     Dates: start: 20221108, end: 20230114
  3. SULFAMETHOXAZOLE\TRIMETHOPRIM [Concomitant]
     Active Substance: SULFAMETHOXAZOLE\TRIMETHOPRIM
     Dates: start: 20221108, end: 20230114
  4. Azithromycin 600 [Concomitant]
     Dates: start: 20221108, end: 20230114

REACTIONS (1)
  - Death [None]

NARRATIVE: CASE EVENT DATE: 20230114
